FAERS Safety Report 6832737-9 (Version None)
Quarter: 2010Q3

REPORT INFORMATION
  Report Type: 
  Country: None (occurrence: None)
  Receive Date: 20100707
  Receipt Date: 20100624
  Transmission Date: 20110219
  Serious: Yes (Death)
  Sender: FDA-Public Use
  Company Number: 2010AP000448

PATIENT
  Age: 47 Year
  Sex: Male

DRUGS (2)
  1. CITALOPRAM HYDROBROMIDE [Suspect]
  2. CLOZARIL [Suspect]
     Indication: SCHIZOPHRENIA
     Dates: start: 20020621

REACTIONS (7)
  - ARTERIOSCLEROSIS CORONARY ARTERY [None]
  - CARDIAC ARREST [None]
  - FALL [None]
  - HEPATIC STEATOSIS [None]
  - MYOCARDIAL ISCHAEMIA [None]
  - PLEURAL ADHESION [None]
  - VENOUS INSUFFICIENCY [None]
